FAERS Safety Report 5703881-4 (Version None)
Quarter: 2008Q2

REPORT INFORMATION
  Report Type: 
  Country: None (occurrence: None)
  Receive Date: 20080414
  Receipt Date: 20080404
  Transmission Date: 20081010
  Serious: Yes (Life-Threatening, Hospitalization)
  Sender: FDA-Public Use
  Company Number: GR-ELI_LILLY_AND_COMPANY-GR200804001209

PATIENT
  Age: 13 Year
  Sex: Female

DRUGS (3)
  1. OLANZAPINE [Suspect]
     Indication: ANXIETY
     Dosage: 5 MG, DAILY (1/D)
     Route: 048
     Dates: start: 20071001, end: 20080324
  2. LADOSE [Concomitant]
     Dosage: 5 ML, DAILY (1/D)
     Route: 048
  3. XANAX [Concomitant]

REACTIONS (3)
  - EXTRAPYRAMIDAL DISORDER [None]
  - PSYCHOTIC DISORDER [None]
  - SUICIDAL IDEATION [None]
